FAERS Safety Report 8363820-7 (Version None)
Quarter: 2012Q2

REPORT INFORMATION
  Report Type: 
  Country: None (occurrence: None)
  Receive Date: 20120516
  Receipt Date: 20120507
  Transmission Date: 20120825
  Serious: Yes (Hospitalization)
  Sender: FDA-Public Use
  Company Number: BR-ASTRAZENECA-2012SE29547

PATIENT
  Age: 68 Year
  Sex: Female
  Weight: 54 kg

DRUGS (5)
  1. ATACAND HCT [Suspect]
     Dosage: 16+12.5 MG AS NEEDED
     Route: 048
     Dates: start: 20120301
  2. METOPROLOL SUCCINATE [Suspect]
     Route: 048
     Dates: start: 20120301
  3. METOPROLOL SUCCINATE [Suspect]
     Route: 048
     Dates: start: 20060101, end: 20120301
  4. TRILEPTAL [Concomitant]
     Indication: EPILEPSY
  5. ATACAND HCT [Suspect]
     Dosage: 16+12.5 MG DAILY
     Route: 048
     Dates: start: 20060101, end: 20120301

REACTIONS (5)
  - CORONARY ARTERY OCCLUSION [None]
  - FATIGUE [None]
  - NOSOCOMIAL INFECTION [None]
  - WEIGHT DECREASED [None]
  - INTENTIONAL DRUG MISUSE [None]
